FAERS Safety Report 18445782 (Version 1)
Quarter: 2020Q4

REPORT INFORMATION
  Report Type: Spontaneous
  Country: US (occurrence: US)
  Receive Date: 20201029
  Receipt Date: 20201029
  Transmission Date: 20210114
  Serious: Yes (Disabling, Other)
  Sender: FDA-Public Use
  Company Number: None

PATIENT
  Age: 69 Year
  Sex: Female
  Weight: 81.45 kg

DRUGS (11)
  1. LEVOTHYROXINE. [Concomitant]
     Active Substance: LEVOTHYROXINE
  2. VITAMIN B COMPLEX [Concomitant]
     Active Substance: CYANOCOBALAMIN\DEXPANTHENOL\NIACINAMIDE\PYRIDOXINE HYDROCHLORIDE\RIBOFLAVIN 5^-PHOSPHATE SODIUM\THIAMINE HYDROCHLORIDE\VITAMIN B COMPLEX
  3. ANASTROZOLE, 1MG [Suspect]
     Active Substance: ANASTROZOLE
     Indication: BREAST CANCER
     Dosage: ?          QUANTITY:1 TABLET(S);?
     Route: 048
     Dates: start: 20190501, end: 20200313
  4. FUROSEMIDE. [Concomitant]
     Active Substance: FUROSEMIDE
  5. MELATONIN [Concomitant]
     Active Substance: MELATONIN
  6. FISH OIL [Concomitant]
     Active Substance: FISH OIL
  7. ATENOLOL. [Concomitant]
     Active Substance: ATENOLOL
  8. SPIRONOLACTONE. [Concomitant]
     Active Substance: SPIRONOLACTONE
  9. BABY ASPIRIN [Concomitant]
     Active Substance: ASPIRIN
  10. CALCIUM/ AGNESIUM/ZINC COMBO [Concomitant]
  11. VITAMINS D [Concomitant]

REACTIONS (8)
  - Tendonitis [None]
  - Tendon rupture [None]
  - Cataract [None]
  - Myalgia [None]
  - Muscle spasms [None]
  - Peripheral nerve lesion [None]
  - Arthralgia [None]
  - Hand deformity [None]
